FAERS Safety Report 25857522 (Version 2)
Quarter: 2025Q4

REPORT INFORMATION
  Report Type: Report from Study
  Country: US (occurrence: US)
  Receive Date: 20250929
  Receipt Date: 20251112
  Transmission Date: 20260118
  Serious: Yes (Other)
  Sender: TEVA
  Company Number: US-TEVA-VS-3375863

PATIENT

DRUGS (2)
  1. CARBOPLATIN [Suspect]
     Active Substance: CARBOPLATIN
     Indication: Retinoblastoma
     Dosage: PERIOCULAR  20MG IN 2 ML PER INJECTION FOUR DOSES
     Route: 065
  2. TOPOTECAN [Suspect]
     Active Substance: TOPOTECAN HYDROCHLORIDE
     Indication: Retinoblastoma
     Dosage: PERIOCULAR 2MG IN 2 ML PER INJECTION FOUR DOSES
     Route: 065

REACTIONS (1)
  - Limbal stem cell deficiency [Unknown]
